FAERS Safety Report 8989395 (Version 1)
Quarter: 2012Q4

REPORT INFORMATION
  Report Type: Report from Study
  Country: DE (occurrence: DE)
  Receive Date: 20121228
  Receipt Date: 20121228
  Transmission Date: 20130627
  Serious: Yes (Death, Life-Threatening, Hospitalization)
  Sender: FDA-Public Use
  Company Number: DE-TEVA-2010006397

PATIENT
  Age: 50 Year
  Sex: Male
  Weight: 90 kg

DRUGS (3)
  1. BENDAMUSTINE HCL [Suspect]
     Indication: NON-HODGKIN^S LYMPHOMA
     Route: 041
     Dates: start: 20101014, end: 20101015
  2. RITUXIMAB [Suspect]
     Indication: NON-HODGKIN^S LYMPHOMA
     Route: 042
     Dates: start: 20101013, end: 20101013
  3. ALLOPURINOL [Concomitant]
     Dates: start: 20100922, end: 20101024

REACTIONS (6)
  - Acute respiratory distress syndrome [Fatal]
  - Hypotonia [Fatal]
  - Renal failure acute [Fatal]
  - Capillary leak syndrome [Fatal]
  - Pleural effusion [Unknown]
  - Febrile neutropenia [Unknown]
